FAERS Safety Report 11117814 (Version 4)
Quarter: 2015Q4

REPORT INFORMATION
  Report Type: Spontaneous
  Country: JP (occurrence: JP)
  Receive Date: 20150518
  Receipt Date: 20151016
  Transmission Date: 20160304
  Serious: Yes (Other)
  Sender: FDA-Public Use
  Company Number: JP-AMGEN-JPNSP2015047424

PATIENT
  Age: 66 Year
  Sex: Female
  Weight: 54 kg

DRUGS (23)
  1. MERCAZOLE [Concomitant]
     Active Substance: CARBIMAZOLE
     Indication: BASEDOW^S DISEASE
     Dosage: 5 MG, QD, 30 MINS AFTER BREAKFAST
     Route: 065
  2. PREDONINE [Concomitant]
     Active Substance: PREDNISOLONE\PREDNISOLONE ACETATE\PREDNISOLONE SODIUM SUCCINATE
     Indication: SPINAL COLUMN STENOSIS
  3. SODIUM BICARBONATE. [Concomitant]
     Active Substance: SODIUM BICARBONATE
     Indication: CHRONIC KIDNEY DISEASE
     Dosage: 0.5 G, QD, 30 MINS AFTER BREAKFAST
     Route: 065
  4. CO-DIOVAN [Concomitant]
     Active Substance: HYDROCHLOROTHIAZIDE\VALSARTAN
     Indication: HYPERTENSION
     Dosage: UNK
     Route: 065
  5. PREDNISOLONE. [Concomitant]
     Active Substance: PREDNISOLONE
     Indication: RHEUMATOID ARTHRITIS
     Dosage: 2.5 MG, QD, 30 MINS AFTER BREAKFAST
     Route: 048
     Dates: start: 20021117
  6. CARERAM [Concomitant]
     Active Substance: IGURATIMOD
     Indication: RHEUMATOID ARTHRITIS
     Dosage: 25 MG, 3 TIMES/WK
     Route: 048
  7. LOXONIN [Concomitant]
     Active Substance: LOXOPROFEN SODIUM
     Indication: SPINAL COLUMN STENOSIS
     Dosage: 1 OR 2 TIMES PER A DAY, FEEL A PAIN   , QD
     Route: 065
  8. CONIEL [Concomitant]
     Active Substance: BENIDIPINE HYDROCHLORIDE
     Indication: HYPERTENSION
     Dosage: 4 MG, QD, 10/16 START, 10/05/07 REDUCE TO 1DF
     Route: 065
  9. KREMEZIN [Concomitant]
     Active Substance: ACTIVATED CHARCOAL
     Indication: CHRONIC KIDNEY DISEASE
     Dosage: 2 G, TID, 2 HRS AFTER BREAKFAST, LUNCH AND SUPPER, INTERVAL FOR 2 HOURS OTHER MEDICINE
     Route: 048
  10. DIART [Concomitant]
     Active Substance: AZOSEMIDE
     Indication: CHRONIC KIDNEY DISEASE
     Dosage: 30 MG, QD, 30 MINS AFTER BREAKFAST, 30-15-8/5 30MG INCREASE(SELF-CONTROLLABLE)
     Route: 065
  11. TOKISHIGYAKUKAGOSHUYUSHOKYOTO [Concomitant]
     Indication: SPINAL COLUMN STENOSIS
     Dosage: 2.5 G, BID, BEFORE BREAKFAST AND LUNCH
     Route: 065
  12. FEBURIC [Concomitant]
     Active Substance: FEBUXOSTAT
     Indication: CHRONIC KIDNEY DISEASE
     Dosage: 20 MG, QD, EVEN 10 MG TAB IS POSSIBLE, 12/09/18 CHANGE FROM ZYLORIC 50, 30 MINS AFTER BREAKFAST
     Route: 065
  13. MAINTATE [Concomitant]
     Active Substance: BISOPROLOL FUMARATE
     Indication: HYPERTENSION
     Dosage: 0.625 MG, QD, EVEN 0.625 MG TAB IS POSSIBLE, AFTER BREAKFAST, START FOR  PALPITATION
     Route: 065
     Dates: start: 20140610
  14. PRALIA [Suspect]
     Active Substance: DENOSUMAB
     Indication: OSTEOPOROSIS
     Dosage: 60 MG, UNK
     Route: 058
     Dates: start: 20131119, end: 20141111
  15. THYRADIN-S [Concomitant]
     Active Substance: LEVOTHYROXINE
     Indication: THYROIDITIS CHRONIC
     Dosage: 25 MG, QD, 30 MINS AFTER BREAKFAST
     Route: 065
  16. MEVALOTIN [Concomitant]
     Active Substance: PRAVASTATIN SODIUM
     Indication: DYSLIPIDAEMIA
     Dosage: 10 MG, QD, 30 MINS AFTER SUPPER
     Route: 065
  17. HIRUDOID                           /00723701/ [Concomitant]
     Indication: ECZEMA
     Dosage: UNK, 1 OR 2 TIMES PER A DAY, FOR ITCH
     Route: 065
  18. CALCITRIOL. [Concomitant]
     Active Substance: CALCITRIOL
     Indication: CHRONIC KIDNEY DISEASE
     Dosage: 0.25 MUG, QD, 30 MINS AFTER BREAKFAST
     Route: 065
     Dates: start: 20110525
  19. PARIET [Concomitant]
     Active Substance: RABEPRAZOLE SODIUM
     Indication: GASTROOESOPHAGEAL REFLUX DISEASE
     Dosage: 10 MG, QD, 30 MINS AFTER BREAKFAST
     Route: 065
  20. PREDONINE [Concomitant]
     Active Substance: PREDNISOLONE\PREDNISOLONE ACETATE\PREDNISOLONE SODIUM SUCCINATE
     Indication: RHEUMATOID ARTHRITIS
     Dosage: 5 MG, QD, 30 MINS AFTER BREAKFAST
     Route: 048
     Dates: start: 20021117
  21. YAKUBAN [Concomitant]
     Active Substance: FLURBIPROFEN
     Indication: SPINAL COLUMN STENOSIS
     Dosage: UNK, FEEL A PAIN, FOR PAIN
     Route: 065
  22. IRBETAN [Concomitant]
     Active Substance: IRBESARTAN
     Indication: HYPERTENSION
     Dosage: 100 MG, BID, 30 MINS AFTER BREAKFAST AND SUPPER, 1/18 2DF INCREASE
     Route: 065
  23. ZYLORIC [Concomitant]
     Active Substance: ALLOPURINOL
     Indication: CHRONIC KIDNEY DISEASE
     Dosage: UNK
     Route: 065

REACTIONS (1)
  - Osteonecrosis of jaw [Not Recovered/Not Resolved]

NARRATIVE: CASE EVENT DATE: 20150414
